FAERS Safety Report 5969756-0 (Version None)
Quarter: 2008Q4

REPORT INFORMATION
  Report Type: 
  Country: None (occurrence: None)
  Receive Date: 20081126
  Receipt Date: 20081119
  Transmission Date: 20090506
  Serious: Yes (Hospitalization, Other)
  Sender: FDA-Public Use
  Company Number: US-ABBOTT-08P-163-0471032-00

PATIENT
  Sex: Female
  Weight: 59.02 kg

DRUGS (14)
  1. HUMIRA [Suspect]
     Indication: RHEUMATOID ARTHRITIS
     Route: 058
     Dates: start: 20070101, end: 20080801
  2. HUMIRA [Suspect]
     Dates: start: 20050901
  3. METHOTREXATE [Concomitant]
     Indication: RHEUMATOID ARTHRITIS
     Dates: start: 20050901
  4. ACTNELLA [Concomitant]
     Indication: DRUG USE FOR UNKNOWN INDICATION
     Dates: start: 20050901
  5. RISEDRONATE SODIUM [Concomitant]
     Indication: DRUG USE FOR UNKNOWN INDICATION
     Dates: start: 20050901
  6. FEXOFENADINE [Concomitant]
     Indication: HYPERSENSITIVITY
     Dates: start: 20050901
  7. DICYCLOMINE HCL [Concomitant]
     Indication: DRUG USE FOR UNKNOWN INDICATION
     Dates: start: 20050901
  8. DICLOFENAC SODIUM [Concomitant]
     Indication: INFLAMMATION
     Dates: start: 20050901
  9. LEUCOVORIN CALCIUM [Concomitant]
     Indication: SUPPLEMENTATION THERAPY
     Dates: start: 20050901
  10. LITHIUM CARBONATE [Concomitant]
     Indication: DRUG USE FOR UNKNOWN INDICATION
     Dates: start: 20050901
  11. PREDNISONE TAB [Concomitant]
     Indication: RHEUMATOID ARTHRITIS
     Dates: start: 20050901
  12. QUETIAPINE FUMARATE [Concomitant]
     Indication: DRUG USE FOR UNKNOWN INDICATION
     Dates: start: 20050901
  13. VICODIN [Concomitant]
     Indication: PAIN
     Dosage: 5/500MG Q60?
     Dates: start: 20050901
  14. ONDANSETRON [Concomitant]
     Indication: DRUG USE FOR UNKNOWN INDICATION
     Dosage: 30 MINUTES BEFORE METHOTREXATE
     Dates: start: 20050901

REACTIONS (4)
  - CHEST DISCOMFORT [None]
  - CHOLELITHIASIS [None]
  - DISCOMFORT [None]
  - NAUSEA [None]
